FAERS Safety Report 24937333 (Version 1)
Quarter: 2025Q1

REPORT INFORMATION
  Report Type: Spontaneous
  Country: GB (occurrence: GB)
  Receive Date: 20250206
  Receipt Date: 20250206
  Transmission Date: 20250408
  Serious: Yes (Other)
  Sender: ADVANZ PHARMA
  Company Number: GB-002147023-NVSC2025GB010560

PATIENT

DRUGS (9)
  1. METHOTREXATE [Suspect]
     Active Substance: METHOTREXATE
     Indication: Product used for unknown indication
  2. PREDNISOLONE [Suspect]
     Active Substance: PREDNISOLONE
     Indication: Product used for unknown indication
  3. XOLAIR [Suspect]
     Active Substance: OMALIZUMAB
     Indication: Chronic spontaneous urticaria
  4. XOLAIR [Suspect]
     Active Substance: OMALIZUMAB
     Indication: Angioedema
  5. CYCLOSPORINE [Suspect]
     Active Substance: CYCLOSPORINE
     Indication: Product used for unknown indication
  6. RITUXIMAB [Suspect]
     Active Substance: RITUXIMAB
     Indication: Product used for unknown indication
     Route: 042
  7. ANAKINRA [Suspect]
     Active Substance: ANAKINRA
     Indication: Product used for unknown indication
  8. TOFACITINIB [Suspect]
     Active Substance: TOFACITINIB
     Indication: Product used for unknown indication
  9. REMIBRUTINIB [Suspect]
     Active Substance: REMIBRUTINIB
     Indication: Angioedema
     Dosage: 300 MG, MONTHLY (300 MG, QMO)

REACTIONS (6)
  - Angioedema [Unknown]
  - Condition aggravated [Unknown]
  - Mental disorder due to a general medical condition [Unknown]
  - Chronic spontaneous urticaria [Unknown]
  - Drug intolerance [Unknown]
  - Treatment failure [Unknown]
